FAERS Safety Report 8618204-0 (Version None)
Quarter: 2012Q3

REPORT INFORMATION
  Report Type: 
  Country: None (occurrence: None)
  Receive Date: 20120824
  Receipt Date: 20111018
  Transmission Date: 20120928
  Serious: No
  Sender: FDA-Public Use
  Company Number: US-ASTRAZENECA-2011SE55600

PATIENT
  Sex: Female

DRUGS (1)
  1. SYMBICORT [Suspect]
     Dosage: 80 MG/4.5 MCG 2 PUFFS ONCE PER NIGHT
     Route: 055

REACTIONS (2)
  - ORAL PAIN [None]
  - WRONG TECHNIQUE IN DRUG USAGE PROCESS [None]
